FAERS Safety Report 5812398-8 (Version None)
Quarter: 2008Q3

REPORT INFORMATION
  Report Type: 
  Country: None (occurrence: None)
  Receive Date: 20080711
  Receipt Date: 20080626
  Transmission Date: 20090109
  Serious: Yes (Other)
  Sender: FDA-Public Use
  Company Number: PHHY2008JP05827

PATIENT
  Age: 65 Year
  Sex: Male

DRUGS (1)
  1. VISUDYNE [Suspect]
     Indication: RETINAL VASCULAR DISORDER
     Dosage: 6 MG DAILY IV
     Route: 042
     Dates: start: 20050701, end: 20050701

REACTIONS (3)
  - DISEASE PROGRESSION [None]
  - MACULAR SCAR [None]
  - VITREOUS HAEMORRHAGE [None]
